FAERS Safety Report 8299794-7 (Version None)
Quarter: 2012Q2

REPORT INFORMATION
  Report Type: 
  Country: None (occurrence: None)
  Receive Date: 20120419
  Receipt Date: 20120419
  Transmission Date: 20120825
  Serious: Yes (Other)
  Sender: FDA-Public Use
  Company Number: None

PATIENT
  Sex: Female
  Weight: 56.699 kg

DRUGS (1)
  1. TAMIFLU [Suspect]
     Indication: INFLUENZA
     Dates: start: 20120304, end: 20120305

REACTIONS (11)
  - PANIC ATTACK [None]
  - ABNORMAL BEHAVIOUR [None]
  - DECREASED APPETITE [None]
  - VISION BLURRED [None]
  - PALPITATIONS [None]
  - HEART RATE INCREASED [None]
  - DELIRIUM [None]
  - DIZZINESS [None]
  - FEELING ABNORMAL [None]
  - INSOMNIA [None]
  - DISSOCIATION [None]
